FAERS Safety Report 9843908 (Version 1)
Quarter: 2013Q4

REPORT INFORMATION
  Report Type: Spontaneous
  Country: US (occurrence: None)
  Receive Date: 20131223
  Receipt Date: 20131223
  Transmission Date: 20140711
  Serious: Yes (Other)
  Sender: FDA-Public Use
  Company Number: 1000049030

PATIENT
  Age: 73 Year
  Sex: Female

DRUGS (12)
  1. LINZESS (LINACLOTIDE) (145 MICROGRAM, CAPSULES) [Suspect]
     Indication: CONSTIPATION
     Route: 048
     Dates: start: 20130911
  2. ATENOLOL (ATENOLOL) (ATENOLOL) [Concomitant]
  3. TRAMADOL (TRAMADOL) (TRAMADOL) [Concomitant]
  4. CLONITIDINE (CLONITIDINE) (CLONITIDINE) [Concomitant]
  5. ZOLPIDEM (ZOLPIDEM) (ZOLPIDEM) [Concomitant]
  6. LORAZEPAM (LORAZEPAM) (LORAZEPAM) [Concomitant]
  7. ESCITALOPRAM (ESCITALOPRAM OXALATE) (ESCITALOPRAM OXALATE) [Concomitant]
  8. NEXIUM (ESOMEPRAZOLE) (ESOMEPRAZOLE) [Concomitant]
  9. LEVOTHYROXINE (LEVOTHYROXINE SODIUM) (LEVOTHYROXINE SODIUM) [Concomitant]
  10. HYDROCODONE (HYDROCODONE) (HYDROCODONE) [Concomitant]
  11. SENNA LAX(SENNOSIDE A+B)(SENNOSIDE A+B) [Concomitant]
  12. CLOPIDOGREL (CLOPIDOGREL) (CLOPIDOGREL) [Concomitant]

REACTIONS (1)
  - Diarrhoea [None]
